FAERS Safety Report 8458162-5 (Version None)
Quarter: 2012Q2

REPORT INFORMATION
  Report Type: 
  Country: None (occurrence: None)
  Receive Date: 20120622
  Receipt Date: 20120612
  Transmission Date: 20120825
  Serious: Yes (Hospitalization)
  Sender: FDA-Public Use
  Company Number: US-JNJFOC-20120606597

PATIENT
  Age: 37 Year
  Sex: Male
  Weight: 93 kg

DRUGS (6)
  1. AMBIEN [Concomitant]
  2. APAP TAB [Suspect]
     Route: 065
  3. APAP/DIPHENHYDRAMINE [Suspect]
     Indication: PRODUCT USED FOR UNKNOWN INDICATION
     Route: 065
  4. APAP TAB [Suspect]
     Indication: PRODUCT USED FOR UNKNOWN INDICATION
     Route: 065
  5. OXYCODONE AND ACETAMINOPHEN [Suspect]
     Indication: PRODUCT USED FOR UNKNOWN INDICATION
  6. LORAZEPAM [Concomitant]

REACTIONS (6)
  - VOMITING [None]
  - DIARRHOEA [None]
  - MULTIPLE DRUG OVERDOSE [None]
  - ABDOMINAL PAIN [None]
  - DRUG-INDUCED LIVER INJURY [None]
  - DRUG ADMINISTRATION ERROR [None]
